FAERS Safety Report 4634013-1 (Version None)
Quarter: 2005Q2

REPORT INFORMATION
  Report Type: 
  Country: None (occurrence: None)
  Receive Date: 20050325
  Receipt Date: 20041220
  Transmission Date: 20051028
  Serious: No
  Sender: FDA-Public Use
  Company Number: USA041182894

PATIENT
  Age: 72 Year
  Sex: Female
  Weight: 54 kg

DRUGS (2)
  1. FORTEO [Suspect]
     Indication: OSTEOPOROSIS
     Dates: start: 20041028, end: 20041102
  2. CELEXA [Concomitant]

REACTIONS (10)
  - ABDOMINAL PAIN [None]
  - BACK PAIN [None]
  - BLOOD CALCIUM INCREASED [None]
  - COMPRESSION FRACTURE [None]
  - MOVEMENT DISORDER [None]
  - PANIC ATTACK [None]
  - SICKLE CELL ANAEMIA [None]
  - TEETHING [None]
  - THINKING ABNORMAL [None]
  - TREMOR [None]
